FAERS Safety Report 21308225 (Version 1)
Quarter: 2022Q3

REPORT INFORMATION
  Report Type: Report from Study
  Country: IT (occurrence: IT)
  Receive Date: 20220908
  Receipt Date: 20220908
  Transmission Date: 20221027
  Serious: Yes (Other)
  Sender: FDA-Public Use
  Company Number: IT-PFIZER INC-202201091375

PATIENT
  Age: 64 Year
  Sex: Male

DRUGS (1)
  1. SUNITINIB MALATE [Suspect]
     Active Substance: SUNITINIB MALATE
     Indication: Neoplasm
     Dosage: CONTINUOUS DAILY DOSING
     Dates: start: 20211201, end: 20220530

REACTIONS (5)
  - Malaise [Unknown]
  - Asthenia [Recovering/Resolving]
  - Loss of personal independence in daily activities [Unknown]
  - Leukopenia [Unknown]
  - Neutropenia [Unknown]
